FAERS Safety Report 5231885-7 (Version None)
Quarter: 2007Q1

REPORT INFORMATION
  Report Type: 
  Country: None (occurrence: None)
  Receive Date: 20070206
  Receipt Date: 20070125
  Transmission Date: 20070707
  Serious: Yes (Hospitalization)
  Sender: FDA-Public Use
  Company Number: JP-PFIZER INC-2007006702

PATIENT
  Age: 5 Year
  Sex: Male

DRUGS (11)
  1. SILDENAFIL (PAH) [Suspect]
     Indication: PULMONARY HYPERTENSION
     Dosage: DAILY DOSE:14MG
     Route: 048
  2. FUROSEMIDE [Concomitant]
  3. ALDACTONE [Concomitant]
  4. PROCYLIN [Concomitant]
  5. ANGINAL [Concomitant]
  6. TRACLEER [Concomitant]
  7. WARFARIN SODIUM [Concomitant]
  8. FERROMIA [Concomitant]
  9. ONON [Concomitant]
  10. MUCODYNE [Concomitant]
  11. AMBROXOL HYDROCHLORIDE [Concomitant]

REACTIONS (3)
  - PLATELET COUNT DECREASED [None]
  - PNEUMONIA [None]
  - WHITE BLOOD CELL COUNT DECREASED [None]
